FAERS Safety Report 7237593-5 (Version None)
Quarter: 2011Q1

REPORT INFORMATION
  Report Type: 
  Country: None (occurrence: None)
  Receive Date: 20110112
  Receipt Date: 20101230
  Transmission Date: 20110831
  Serious: Yes (Other)
  Sender: FDA-Public Use
  Company Number: GB-1184277

PATIENT
  Age: 13 Year
  Sex: Male

DRUGS (6)
  1. PRED FORTE [Suspect]
     Dosage: OPHTHALMIC
     Route: 047
  2. RISPERIDONE [Suspect]
     Indication: AUTISM
     Dosage: 0.25 MG BID ORAL
     Route: 048
     Dates: start: 20060601
  3. RISPERIDONE [Suspect]
     Indication: ATTENTION DEFICIT/HYPERACTIVITY DISORDER
     Dosage: 0.25 MG BID ORAL
     Route: 048
     Dates: start: 20060601
  4. VEXOL [Suspect]
     Dosage: OPHTHALMIC
     Route: 047
  5. EQUASYM (METHYLPHENIDATE HYDROCHLORIDE) TABLET [Suspect]
     Indication: AUTISM
     Dosage: 50 MG QD ORAL
     Route: 048
     Dates: start: 20060901
  6. EQUASYM (METHYLPHENIDATE HYDROCHLORIDE) TABLET [Suspect]
     Indication: ATTENTION DEFICIT/HYPERACTIVITY DISORDER
     Dosage: 50 MG QD ORAL
     Route: 048
     Dates: start: 20060901

REACTIONS (10)
  - OCULAR HYPERAEMIA [None]
  - EYELID OEDEMA [None]
  - VISUAL IMPAIRMENT [None]
  - CSF PRESSURE INCREASED [None]
  - CONJUNCTIVITIS [None]
  - PAPILLOEDEMA [None]
  - BENIGN INTRACRANIAL HYPERTENSION [None]
  - EYE PAIN [None]
  - CONJUNCTIVITIS ALLERGIC [None]
  - EYE PRURITUS [None]
